FAERS Safety Report 8838936 (Version 2)
Quarter: 2012Q4

REPORT INFORMATION
  Report Type: 
  Country: US (occurrence: US)
  Receive Date: 20121015
  Receipt Date: 20121029
  Transmission Date: 20130627
  Serious: Yes (Other)
  Sender: FDA-Public Use
  Company Number: US-MERCK-1210USA005434

PATIENT
  Age: 54 Year
  Sex: Male

DRUGS (2)
  1. JANUMET [Suspect]
     Indication: TYPE 2 DIABETES MELLITUS
     Dosage: 50mg/500mg
     Route: 048
  2. PRINIVIL [Interacting]
     Dosage: 40 mg, UNK
     Route: 048

REACTIONS (2)
  - Renal failure acute [Unknown]
  - Drug interaction [Unknown]
